FAERS Safety Report 25684918 (Version 1)
Quarter: 2025Q3

REPORT INFORMATION
  Report Type: Spontaneous
  Country: CA (occurrence: CA)
  Receive Date: 20250815
  Receipt Date: 20250815
  Transmission Date: 20251020
  Serious: Yes (Other)
  Sender: HIKMA
  Company Number: CA-HIKMA PHARMACEUTICALS USA INC.-CA-H14001-25-09401

PATIENT
  Age: 29 Year
  Sex: Female

DRUGS (3)
  1. LIDOCAINE [Suspect]
     Active Substance: LIDOCAINE
     Indication: Epidural anaesthesia
     Route: 065
  2. LIDOCAINE [Suspect]
     Active Substance: LIDOCAINE
     Indication: Local anaesthesia
  3. EPINEPHRINE [Concomitant]
     Active Substance: EPINEPHRINE
     Indication: Epidural anaesthesia
     Route: 065

REACTIONS (3)
  - Embolia cutis medicamentosa [Recovering/Resolving]
  - Injection site necrosis [Recovering/Resolving]
  - Maternal exposure during pregnancy [Recovering/Resolving]
